FAERS Safety Report 15933594 (Version 2)
Quarter: 2019Q1

REPORT INFORMATION
  Report Type: Spontaneous
  Country: GB (occurrence: GB)
  Receive Date: 20190207
  Receipt Date: 20190311
  Transmission Date: 20190417
  Serious: Yes (Life-Threatening)
  Sender: FDA-Public Use
  Company Number: GB-MYLANLABS-2019M1010855

PATIENT
  Age: 36 Year
  Sex: Female

DRUGS (3)
  1. MAGNESIUM SULFATE. [Suspect]
     Active Substance: MAGNESIUM SULFATE
     Indication: ECLAMPSIA
     Dosage: 8 G, UNK
     Route: 065
  2. OXYTOCIN. [Suspect]
     Active Substance: OXYTOCIN
     Indication: LABOUR INDUCTION
     Dosage: 10 IU, UNK (IN 0.9 PERCENT SALINE 500 ML, DOSE ESCALATED PER PROTOCOL)
     Route: 065
  3. SODIUM CHLORIDE. [Suspect]
     Active Substance: SODIUM CHLORIDE
     Indication: HYPONATRAEMIA
     Dosage: 500 MILLILITER
     Route: 065

REACTIONS (7)
  - Generalised tonic-clonic seizure [Unknown]
  - Brain oedema [Recovered/Resolved]
  - Hyponatraemic seizure [Recovered/Resolved]
  - Hyponatraemia [Recovered/Resolved]
  - Postmature baby [Unknown]
  - Eclampsia [Unknown]
  - Maternal exposure during delivery [Recovered/Resolved]
